FAERS Safety Report 4518675-5 (Version None)
Quarter: 2004Q4

REPORT INFORMATION
  Report Type: 
  Country: None (occurrence: None)
  Receive Date: 20041201
  Receipt Date: 20041124
  Transmission Date: 20050328
  Serious: Yes (Death)
  Sender: FDA-Public Use
  Company Number: GBWYE231524NOV04

PATIENT
  Age: 82 Year
  Sex: Male

DRUGS (14)
  1. DIAMOX [Suspect]
     Indication: INTRAOCULAR PRESSURE INCREASED
     Dosage: 1 TABLET 2X PER 1 DAY ORAL
     Route: 048
     Dates: start: 20041116, end: 20041116
  2. ENALAPRIL (ENALAPRIL) [Concomitant]
  3. FUROSEMIDE [Concomitant]
  4. SEREVENT [Concomitant]
  5. COMBIVENT [Concomitant]
  6. CYCLOPENTOLATE HYDROCHLORIDE (CYCLOPENTOLATE HYDROCHLORIDE) [Concomitant]
  7. DICLOFENAC SODIUM [Concomitant]
  8. MINIMS PHENYLEPHRINE (PHENYLEPHRINE HYDROCHLORIDE) [Concomitant]
  9. LIDOCAINE [Concomitant]
  10. HYALASE (HYALURONIDASE) [Concomitant]
  11. AMETHOCAINE (TETRACAINE) [Concomitant]
  12. PROXYMETACAINE (PROXYMETACAINE) [Concomitant]
  13. BETADINE [Concomitant]
  14. EPINEPHRINE [Concomitant]

REACTIONS (1)
  - SUDDEN DEATH [None]
